FAERS Safety Report 8694587 (Version 3)
Quarter: 2013Q1

REPORT INFORMATION
  Report Type: Spontaneous
  Country: US (occurrence: US)
  Receive Date: 20120731
  Receipt Date: 20130122
  Transmission Date: 20140127
  Serious: Yes (Other)
  Sender: FDA-Public Use
  Company Number: US-PFIZER INC-2012181859

PATIENT
  Age: 19 Year
  Sex: Female
  Weight: 86.6 kg

DRUGS (2)
  1. DEPO-PROVERA [Suspect]
     Indication: CONTRACEPTION
     Dosage: 150 MG, EVERY 3 MONTHS
     Route: 030
     Dates: start: 20120613
  2. GENERESS FE [Concomitant]
     Dosage: 0.8-25 MG-MCG

REACTIONS (6)
  - Dyspnoea [Unknown]
  - Chest pain [Unknown]
  - Chest discomfort [Unknown]
  - Heart rate increased [Unknown]
  - Insomnia [Unknown]
  - Palpitations [Unknown]
